FAERS Safety Report 17845867 (Version 1)
Quarter: 2020Q2

REPORT INFORMATION
  Report Type: Spontaneous
  Country: US (occurrence: US)
  Receive Date: 20200529
  Receipt Date: 20200529
  Transmission Date: 20200714
  Serious: Yes (Hospitalization)
  Sender: FDA-Public Use
  Company Number: None

PATIENT
  Age: 55 Year
  Sex: Male

DRUGS (7)
  1. AMLODIPINE [Concomitant]
     Active Substance: AMLODIPINE BESYLATE
  2. ATORVASTATIN [Concomitant]
     Active Substance: ATORVASTATIN
  3. MELOXICAM. [Concomitant]
     Active Substance: MELOXICAM
  4. ATENOLOL. [Concomitant]
     Active Substance: ATENOLOL
  5. MOBIC [Concomitant]
     Active Substance: MELOXICAM
  6. RAMIPRIL. [Concomitant]
     Active Substance: RAMIPRIL
  7. ENBREL [Suspect]
     Active Substance: ETANERCEPT
     Indication: RHEUMATOID ARTHRITIS
     Dosage: 1 ML (50MG) QWK SQ
     Route: 058
     Dates: start: 20140304

REACTIONS (2)
  - Therapy interrupted [None]
  - Myocardial infarction [None]

NARRATIVE: CASE EVENT DATE: 20200529
